FAERS Safety Report 4314573-0 (Version None)
Quarter: 2004Q1

REPORT INFORMATION
  Report Type: 
  Country: None (occurrence: None)
  Receive Date: 20040309
  Receipt Date: 20040220
  Transmission Date: 20041129
  Serious: Yes (Hospitalization)
  Sender: FDA-Public Use
  Company Number: DSA_23975_2004

PATIENT
  Age: 56 Year
  Sex: Male

DRUGS (12)
  1. LORAZEPAM [Suspect]
     Dosage: 2.5 MG QD PO
     Route: 048
     Dates: end: 20031221
  2. ALPRAZOLAM [Suspect]
     Dosage: 0.25 MG BID PO
     Route: 048
     Dates: end: 20031221
  3. NEURONTIN [Suspect]
     Dosage: 800 MG TID PO
     Route: 048
     Dates: end: 20031221
  4. NEURONTIN [Suspect]
     Dates: start: 20031201
  5. RIVOTRIL [Suspect]
     Dosage: 5 GTT QD PO
     Route: 048
  6. FONZYLANE [Concomitant]
  7. COVERSYL [Concomitant]
  8. DUPHALAC [Concomitant]
  9. INSULIN MIXTARD [Concomitant]
  10. SEREVENT [Concomitant]
  11. BECOTIDE [Concomitant]
  12. VENTOLIN [Concomitant]

REACTIONS (5)
  - DEPRESSED LEVEL OF CONSCIOUSNESS [None]
  - DRUG INTERACTION [None]
  - MEDICATION ERROR [None]
  - OXYGEN SATURATION DECREASED [None]
  - SOMNOLENCE [None]
